FAERS Safety Report 5381658-X (Version None)
Quarter: 2007Q3

REPORT INFORMATION
  Report Type: 
  Country: None (occurrence: None)
  Receive Date: 20070709
  Receipt Date: 20070629
  Transmission Date: 20080115
  Serious: Yes (Hospitalization)
  Sender: FDA-Public Use
  Company Number: PHHO2007FR11318

PATIENT
  Age: 54 Year
  Sex: Male

DRUGS (4)
  1. CYCLOSPORINE [Suspect]
     Indication: RENAL TRANSPLANT
     Dosage: 400 MG, QD
     Route: 048
     Dates: start: 20070503
  2. CYCLOSPORINE [Suspect]
     Dosage: 350 MG, QD
  3. CORTANCYL [Concomitant]
     Dates: start: 20070528
  4. CELLCEPT [Concomitant]
     Dates: start: 20070417

REACTIONS (1)
  - HYPERCREATININAEMIA [None]
